FAERS Safety Report 4994073-5 (Version None)
Quarter: 2006Q2

REPORT INFORMATION
  Report Type: 
  Country: None (occurrence: None)
  Receive Date: 20060503
  Receipt Date: 20060425
  Transmission Date: 20061013
  Serious: Yes (Life-Threatening, Hospitalization, Other)
  Sender: FDA-Public Use
  Company Number: 2006JP000616

PATIENT
  Age: 61 Year
  Sex: Female
  Weight: 41.2 kg

DRUGS (4)
  1. FUNGUARD (MICAFUNGIN) INJECTION [Suspect]
     Indication: BRONCHOPULMONARY ASPERGILLOSIS
     Dosage: SEE IMAGE
     Route: 041
     Dates: start: 20040601, end: 20040605
  2. FUNGUARD (MICAFUNGIN) INJECTION [Suspect]
     Indication: BRONCHOPULMONARY ASPERGILLOSIS
     Dosage: SEE IMAGE
     Route: 041
     Dates: start: 20040606, end: 20040628
  3. CIPROXAN (CIPROFLOXACIN HYDROCHLORIDE) INJECTION [Suspect]
     Indication: PNEUMONIA BACTERIAL
     Dosage: 300 MG, UID/QD, IV NOS
     Route: 042
     Dates: start: 20040608, end: 20040624
  4. HABEKACIN (ARBEKACIN) INJECTION [Suspect]
     Indication: PNEUMONIA BACTERIAL
     Dosage: 200 MG, UID/QD, IV NOS
     Route: 042
     Dates: start: 20040616, end: 20040626

REACTIONS (5)
  - ALANINE AMINOTRANSFERASE INCREASED [None]
  - ASPARTATE AMINOTRANSFERASE INCREASED [None]
  - GAMMA-GLUTAMYLTRANSFERASE INCREASED [None]
  - HEPATIC FUNCTION ABNORMAL [None]
  - TOXIC EPIDERMAL NECROLYSIS [None]
